FAERS Safety Report 9349867 (Version 2)
Quarter: 2013Q2

REPORT INFORMATION
  Report Type: Spontaneous
  Country: US (occurrence: None)
  Receive Date: 20130611
  Receipt Date: 20130611
  Transmission Date: 20140414
  Serious: Yes (Other)
  Sender: FDA-Public Use
  Company Number: ADR-2013-00966

PATIENT
  Age: 49 Year
  Sex: Male

DRUGS (2)
  1. BACLOFEN INTRATHECAL [Suspect]
     Indication: SPINAL PAIN
  2. HYDROMORPHONE [Concomitant]

REACTIONS (6)
  - Drug ineffective [None]
  - Swelling [None]
  - Abasia [None]
  - Hypoaesthesia [None]
  - Fall [None]
  - Medical device complication [None]
